FAERS Safety Report 16327352 (Version 5)
Quarter: 2019Q4

REPORT INFORMATION
  Report Type: Report from Study
  Country: US (occurrence: US)
  Receive Date: 20190517
  Receipt Date: 20191004
  Transmission Date: 20200122
  Serious: Yes (Life-Threatening, Hospitalization, Other)
  Sender: FDA-Public Use
  Company Number: US-INCYTE CORPORATION-2019IN004974

PATIENT

DRUGS (29)
  1. OXYBUTYNIN CHLORIDE. [Concomitant]
     Active Substance: OXYBUTYNIN CHLORIDE
     Indication: BLADDER DILATATION
     Dosage: 5 MILLIGRAM, QD
     Route: 048
     Dates: start: 20170920
  2. AMLODIPINE BESYLATE. [Concomitant]
     Active Substance: AMLODIPINE BESYLATE
     Indication: CARDIOVASCULAR DISORDER
  3. FLOVENT [Concomitant]
     Active Substance: FLUTICASONE PROPIONATE
     Indication: ASTHMA
     Dosage: 110 MICROGRAM
     Dates: start: 20160726
  4. FLUTICASONE PROPIONATE. [Concomitant]
     Active Substance: FLUTICASONE PROPIONATE
     Indication: ASTHMA
     Dosage: 50 MICROGRAM
     Route: 045
     Dates: start: 20160726, end: 20170607
  5. INTERFERON [Concomitant]
     Active Substance: INTERFERON
     Indication: MYELOFIBROSIS
     Dosage: 45 MICROGRAM, WEEKLY
     Route: 065
     Dates: start: 20080122, end: 20130313
  6. POTASSIUM CITRATE. [Concomitant]
     Active Substance: POTASSIUM CITRATE
     Indication: SUPPLEMENTATION THERAPY
     Dosage: 1080 MILLIGRAM, BID
     Route: 048
     Dates: start: 20171018, end: 20190129
  7. ALBUTEROL SULFATE. [Concomitant]
     Active Substance: ALBUTEROL SULFATE
     Indication: ASTHMA
     Dosage: 2.5 MILLIGRAM, TID
     Route: 065
     Dates: start: 20180116
  8. CITALOPRAM [Concomitant]
     Active Substance: CITALOPRAM HYDROBROMIDE
     Indication: DEPRESSION
     Dosage: 20 MILLIGRAM, QD
     Route: 048
     Dates: start: 20131022
  9. INTERFERON [Concomitant]
     Active Substance: INTERFERON
     Dosage: 1.5 MU, TIW
     Route: 065
     Dates: start: 20131022, end: 20171114
  10. LOPERAMIDE [Concomitant]
     Active Substance: LOPERAMIDE
     Indication: DIARRHOEA
     Dosage: UNK, PRN
     Route: 065
     Dates: start: 20181120, end: 20190129
  11. LASIX [Concomitant]
     Active Substance: FUROSEMIDE
     Indication: RENAL DISORDER
     Dosage: 20 MILLIGRAM, QOD
     Route: 065
     Dates: start: 20190521
  12. LANSOPRAZOLE. [Concomitant]
     Active Substance: LANSOPRAZOLE
     Indication: HYPERTENSIVE HEART DISEASE
     Dosage: 20 MILLIGRAM, QD
     Route: 048
     Dates: start: 20121023
  13. LEVAQUIN [Concomitant]
     Active Substance: LEVOFLOXACIN
     Indication: ANTIBIOTIC THERAPY
     Dosage: 500 MILLIGRAM, QD
     Route: 048
     Dates: start: 20140617, end: 20141216
  14. JAKAFI [Suspect]
     Active Substance: RUXOLITINIB
     Dosage: 10 MILLIGRAM, BID
     Route: 048
     Dates: start: 20170920
  15. NAVITOCLAX [Suspect]
     Active Substance: NAVITOCLAX
     Indication: PRODUCT USED FOR UNKNOWN INDICATION
     Route: 065
  16. CHOLESTYRAMINE. [Concomitant]
     Active Substance: CHOLESTYRAMINE
     Indication: BLOOD CHOLESTEROL INCREASED
     Dosage: 4 GRAM, QD PRN
     Route: 048
     Dates: start: 20180814, end: 20180829
  17. PREDNISONE. [Concomitant]
     Active Substance: PREDNISONE
     Indication: ANAEMIA
     Dosage: 5 MILLIGRAM, QD PRN
     Route: 065
     Dates: start: 201710
  18. ASPIRIN                            /00002701/ [Concomitant]
     Active Substance: ASPIRIN
     Indication: THROMBOSIS PROPHYLAXIS
     Dosage: 81 MILLIGRAM, QD
     Route: 048
     Dates: start: 20080211
  19. MUPIROCIN. [Concomitant]
     Active Substance: MUPIROCIN
     Indication: PRODUCT USED FOR UNKNOWN INDICATION
     Dosage: UNK, BID
     Route: 065
     Dates: start: 20190714
  20. JAKAFI [Suspect]
     Active Substance: RUXOLITINIB
     Indication: MYELOFIBROSIS
     Dosage: 5 MILLIGRAM, QD
     Route: 048
     Dates: start: 20160725, end: 20161116
  21. PREDNISONE. [Concomitant]
     Active Substance: PREDNISONE
     Indication: MOUTH ULCERATION
     Dosage: 5 MILLIGRAM, QD PRN
     Route: 065
     Dates: start: 20170920
  22. HYOSCYAMINE SULFATE. [Concomitant]
     Active Substance: HYOSCYAMINE SULFATE
     Indication: IRRITABLE BOWEL SYNDROME
     Dosage: 0.375 MILLIGRAM, BID
     Route: 048
     Dates: start: 20170430, end: 20181010
  23. HYOSCYAMINE SULFATE. [Concomitant]
     Active Substance: HYOSCYAMINE SULFATE
     Dosage: 0.375 MG, BID
     Route: 048
     Dates: start: 20181120
  24. POTASSIUM CITRATE. [Concomitant]
     Active Substance: POTASSIUM CITRATE
     Dosage: 1080 MILLIGRAM, BID
     Route: 048
     Dates: start: 20171018, end: 20181009
  25. CHOLESTYRAMINE. [Concomitant]
     Active Substance: CHOLESTYRAMINE
     Indication: DIARRHOEA
     Dosage: 4 GRAM, PRN
     Route: 048
     Dates: start: 20181120
  26. AMLODIPINE BESYLATE. [Concomitant]
     Active Substance: AMLODIPINE BESYLATE
     Indication: HYPERTENSIVE HEART DISEASE
     Dosage: 5 MILLIGRAM, QD
     Route: 048
     Dates: start: 20080211
  27. DENTA 5000 PLUS [Concomitant]
     Active Substance: SODIUM FLUORIDE
     Indication: PRODUCT USED FOR UNKNOWN INDICATION
     Dosage: UNK, QD
     Route: 065
     Dates: start: 20190617
  28. JAKAFI [Suspect]
     Active Substance: RUXOLITINIB
     Indication: POLYCYTHAEMIA VERA
     Dosage: 5 MILLIGRAM, BID
     Route: 048
     Dates: start: 20130313, end: 20130702
  29. LORAZEPAM. [Concomitant]
     Active Substance: LORAZEPAM
     Indication: ANXIETY
     Dosage: 0.5 MILLIGRAM, QD, PRN
     Route: 048
     Dates: start: 20171219, end: 20190129

REACTIONS (35)
  - Neutropenia [Recovered/Resolved]
  - Cellulitis [Recovered/Resolved]
  - Ecchymosis [Recovering/Resolving]
  - Pleural effusion [Recovered/Resolved]
  - Muscle spasms [Recovered/Resolved]
  - Anaemia [Not Recovered/Not Resolved]
  - Chills [Recovered/Resolved]
  - Dyspnoea [Recovering/Resolving]
  - Fatigue [Recovered/Resolved]
  - Increased tendency to bruise [Recovered/Resolved]
  - Syncope [Recovered/Resolved]
  - Myelofibrosis [Not Recovered/Not Resolved]
  - Thrombocytopenia [Recovered/Resolved]
  - Erythema [Recovered/Resolved]
  - Nephropathy [Not Recovered/Not Resolved]
  - Fatigue [Recovered/Resolved]
  - Thrombocytopenia [Not Recovered/Not Resolved]
  - White blood cell count decreased [Recovered/Resolved]
  - Cardiac murmur [Recovered/Resolved]
  - Feeling cold [Recovered/Resolved]
  - Urinary tract infection [Recovered/Resolved]
  - Nephrolithiasis [Recovering/Resolving]
  - Pyrexia [Recovered/Resolved]
  - Blood cholesterol increased [Not Recovered/Not Resolved]
  - Pneumonia [Recovering/Resolving]
  - Fatigue [Recovered/Resolved]
  - Chills [Recovered/Resolved]
  - Thrombophlebitis superficial [Recovered/Resolved]
  - Peripheral swelling [Recovered/Resolved]
  - Anaemia [Recovered/Resolved]
  - Cardiac murmur [Recovered/Resolved]
  - Thrombophlebitis superficial [Recovered/Resolved]
  - Blood creatinine increased [Not Recovered/Not Resolved]
  - Abdominal distension [Not Recovered/Not Resolved]
  - Fatigue [Recovered/Resolved]

NARRATIVE: CASE EVENT DATE: 20160726
